FAERS Safety Report 20379822 (Version 1)
Quarter: 2022Q1

REPORT INFORMATION
  Report Type: Spontaneous
  Country: US (occurrence: None)
  Receive Date: 20220126
  Receipt Date: 20220126
  Transmission Date: 20220423
  Serious: Yes (Disabling)
  Sender: FDA-Public Use
  Company Number: None

PATIENT
  Age: 44 Year
  Sex: Female
  Weight: 66.15 kg

DRUGS (1)
  1. REGEN-COV [Suspect]
     Active Substance: CASIRIVIMAB\IMDEVIMAB
     Indication: COVID-19
     Dosage: FREQUENCY : ONCE;?
     Route: 058
     Dates: start: 20220114, end: 20220114

REACTIONS (8)
  - Dizziness [None]
  - Syncope [None]
  - Injection site pruritus [None]
  - Injection site rash [None]
  - Urticaria [None]
  - Injection site bruising [None]
  - Facial paralysis [None]
  - Injection related reaction [None]

NARRATIVE: CASE EVENT DATE: 20220114
